FAERS Safety Report 4474661-5 (Version None)
Quarter: 2004Q4

REPORT INFORMATION
  Report Type: 
  Country: None (occurrence: None)
  Receive Date: 20041014
  Receipt Date: 20040826
  Transmission Date: 20050328
  Serious: Yes (Hospitalization)
  Sender: FDA-Public Use
  Company Number: PHEH2004US09380

PATIENT
  Age: 63 Year
  Sex: Female

DRUGS (1)
  1. SERENTIL [Suspect]
     Indication: MENTAL DISORDER
     Dates: end: 20040301

REACTIONS (3)
  - DELUSIONAL DISORDER, UNSPECIFIED TYPE [None]
  - PARANOIA [None]
  - TARDIVE DYSKINESIA [None]
